FAERS Safety Report 7461539-8 (Version None)
Quarter: 2011Q2

REPORT INFORMATION
  Report Type: 
  Country: None (occurrence: None)
  Receive Date: 20110428
  Receipt Date: 20110415
  Transmission Date: 20111010
  Serious: Yes (Other)
  Sender: FDA-Public Use
  Company Number: 2011P1006048

PATIENT
  Age: 17 Year
  Sex: Male

DRUGS (4)
  1. GUANFACINE HYDROCHLORIDE [Concomitant]
  2. LAMOTRIGINE [Suspect]
     Indication: EPILEPSY
     Dosage: 300, 350 MG, QD, PO
     Route: 048
     Dates: start: 20100730
  3. LAMOTRIGINE [Suspect]
     Indication: EPILEPSY
     Dosage: 300, 350 MG, QD, PO
     Route: 048
     Dates: start: 20110101
  4. CLONAZEPAM [Concomitant]

REACTIONS (6)
  - FALL [None]
  - WEIGHT INCREASED [None]
  - WRONG TECHNIQUE IN DRUG USAGE PROCESS [None]
  - CONDITION AGGRAVATED [None]
  - DYSPHAGIA [None]
  - PARTIAL SEIZURES [None]
